FAERS Safety Report 10501111 (Version 1)
Quarter: 2014Q4

REPORT INFORMATION
  Report Type: Spontaneous
  Country: US (occurrence: None)
  Receive Date: 20141003
  Receipt Date: 20141003
  Transmission Date: 20150528
  Serious: Yes (Life-Threatening, Hospitalization, Disabling, Other)
  Sender: FDA-Public Use
  Company Number: None

PATIENT
  Age: 51 Year
  Sex: Male
  Weight: 79.38 kg

DRUGS (1)
  1. PROPECIA [Suspect]
     Active Substance: FINASTERIDE
     Indication: ALOPECIA
     Route: 048
     Dates: start: 19980101, end: 20080101

REACTIONS (10)
  - Alcohol problem [None]
  - Loss of libido [None]
  - Anxiety [None]
  - Amnesia [None]
  - Activities of daily living impaired [None]
  - Drug ineffective [None]
  - Erectile dysfunction [None]
  - Depression [None]
  - Loss of employment [None]
  - Thinking abnormal [None]

NARRATIVE: CASE EVENT DATE: 20081015
